FAERS Safety Report 9286328 (Version 1)
Quarter: 2013Q2

REPORT INFORMATION
  Report Type: Spontaneous
  Country: JP (occurrence: JP)
  Receive Date: 20130513
  Receipt Date: 20130513
  Transmission Date: 20140414
  Serious: Yes (Hospitalization)
  Sender: FDA-Public Use
  Company Number: JP-PFIZER INC-2013009638

PATIENT
  Age: 55 Year
  Sex: Male

DRUGS (11)
  1. LYRICA [Suspect]
     Indication: PAIN
     Dosage: UNK
     Route: 048
  2. LYRICA [Suspect]
     Indication: DIABETIC NEUROPATHY
  3. ACTOS [Suspect]
  4. LANTUS [Concomitant]
  5. APIDRA [Concomitant]
  6. MEXILETINE [Concomitant]
     Route: 048
  7. FENTANYL [Concomitant]
     Route: 062
  8. LORAZEPAM [Concomitant]
     Route: 048
  9. VALPROATE SODIUM [Concomitant]
     Route: 048
  10. GOREI-SAN [Concomitant]
     Route: 048
  11. KINEDAK [Concomitant]

REACTIONS (3)
  - Osteonecrosis [Unknown]
  - Pain in extremity [Recovered/Resolved]
  - Urticaria [Recovered/Resolved]
